FAERS Safety Report 23028320 (Version 1)
Quarter: 2023Q4

REPORT INFORMATION
  Report Type: Spontaneous
  Country: US (occurrence: US)
  Receive Date: 20231004
  Receipt Date: 20231004
  Transmission Date: 20240110
  Serious: Yes (Hospitalization)
  Sender: FDA-Public Use
  Company Number: US-JNJFOC-20230962724

PATIENT
  Age: 92 Year
  Sex: Male

DRUGS (1)
  1. XARELTO [Suspect]
     Active Substance: RIVAROXABAN
     Indication: Product used for unknown indication
     Route: 048
     Dates: start: 20230801

REACTIONS (3)
  - Upper gastrointestinal haemorrhage [Recovered/Resolved]
  - Septic shock [Unknown]
  - Gastritis [Unknown]

NARRATIVE: CASE EVENT DATE: 20230801
